FAERS Safety Report 11133429 (Version 3)
Quarter: 2015Q4

REPORT INFORMATION
  Report Type: Report from Study
  Country: BR (occurrence: BR)
  Receive Date: 20150522
  Receipt Date: 20151210
  Transmission Date: 20160304
  Serious: No
  Sender: FDA-Public Use
  Company Number: PHHY2015BR059161

PATIENT
  Age: 72 Year
  Sex: Female
  Weight: 62 kg

DRUGS (4)
  1. ANGIPRESS CD [Concomitant]
     Active Substance: ATENOLOL\CHLORTHALIDONE
     Indication: HYPERTENSION
     Dosage: 1 DF, QD
     Route: 048
  2. ACLASTA [Suspect]
     Active Substance: ZOLEDRONIC ACID
     Indication: OSTEOPOROSIS
     Dosage: 5 MG, Q12MO
     Route: 042
     Dates: start: 20150507
  3. MIONEVRIX [Concomitant]
     Active Substance: CARISOPRODOL\CYANOCOBALAMIN\METAMIZOLE\PYRIDOXINE\THIAMINE
     Indication: FIBROMYALGIA
     Dosage: 2 DF, QD
     Route: 048
  4. CRESTOR [Concomitant]
     Active Substance: ROSUVASTATIN CALCIUM
     Indication: BLOOD CHOLESTEROL INCREASED
     Dosage: 1 DF, QD
     Route: 048

REACTIONS (7)
  - Pruritus [Recovering/Resolving]
  - Skin swelling [Recovering/Resolving]
  - Urticaria [Recovered/Resolved]
  - Scratch [Recovering/Resolving]
  - Weight increased [Recovering/Resolving]
  - Pain in extremity [Unknown]
  - Pain [Recovering/Resolving]

NARRATIVE: CASE EVENT DATE: 20150513
